FAERS Safety Report 9340905 (Version 2)
Quarter: 2013Q2

REPORT INFORMATION
  Report Type: Spontaneous
  Country: US (occurrence: US)
  Receive Date: 20130610
  Receipt Date: 20130614
  Transmission Date: 20140414
  Serious: Yes (Hospitalization)
  Sender: FDA-Public Use
  Company Number: US-GILEAD-2013-0074933

PATIENT
  Sex: Female

DRUGS (3)
  1. LETAIRIS [Suspect]
     Indication: PULMONARY ARTERIAL HYPERTENSION
     Dosage: 10 MG, QD
     Dates: start: 20130419
  2. LETAIRIS [Suspect]
     Indication: SLEEP APNOEA SYNDROME
  3. WARFARIN [Concomitant]

REACTIONS (3)
  - Respiratory failure [Unknown]
  - Fluid overload [Unknown]
  - Cardiac failure [Unknown]
